FAERS Safety Report 7933025-X (Version None)
Quarter: 2011Q4

REPORT INFORMATION
  Report Type: 
  Country: None (occurrence: None)
  Receive Date: 20111121
  Receipt Date: 20111121
  Transmission Date: 20120403
  Serious: Yes (Hospitalization)
  Sender: FDA-Public Use
  Company Number: None

PATIENT
  Sex: Male
  Weight: 86.5 kg

DRUGS (3)
  1. LEUCOVORIN CALCIUM [Suspect]
     Dosage: 3200 MG
     Dates: end: 20111025
  2. IRINOTECAN HCL [Suspect]
     Dosage: 1020 MG
     Dates: end: 20111025
  3. FLUOROURACIL [Suspect]
     Dosage: 15700 MG
     Dates: end: 20111025

REACTIONS (1)
  - PULMONARY EMBOLISM [None]
